FAERS Safety Report 15683852 (Version 1)
Quarter: 2018Q4

REPORT INFORMATION
  Report Type: Spontaneous
  Country: US (occurrence: US)
  Receive Date: 20181204
  Receipt Date: 20181204
  Transmission Date: 20190205
  Serious: No
  Sender: FDA-Public Use
  Company Number: US-GLENMARK PHARMACEUTICALS-2018GMK037691

PATIENT

DRUGS (3)
  1. DESOXIMETASONE. [Suspect]
     Active Substance: DESOXIMETASONE
     Indication: ARTHROPOD BITE
     Dosage: UNK
     Route: 061
     Dates: start: 20180929, end: 20180930
  2. DEXAMETASON                        /00016001/ [Concomitant]
     Active Substance: DEXAMETHASONE
     Indication: POSTOPERATIVE CARE
     Dosage: UNK (OPHTHALMIC SOLUTION)
     Route: 047
  3. RESTASIS [Concomitant]
     Active Substance: CYCLOSPORINE
     Indication: POSTOPERATIVE CARE
     Dosage: UNK (OPHTHALMIC SOLUTION)
     Route: 047

REACTIONS (3)
  - Rash [Not Recovered/Not Resolved]
  - Application site hypersensitivity [Not Recovered/Not Resolved]
  - Erythema [Not Recovered/Not Resolved]

NARRATIVE: CASE EVENT DATE: 20180930
